FAERS Safety Report 19673732 (Version 1)
Quarter: 2021Q3

REPORT INFORMATION
  Report Type: Spontaneous
  Country: US (occurrence: US)
  Receive Date: 20210806
  Receipt Date: 20210806
  Transmission Date: 20211014
  Serious: Yes (Hospitalization)
  Sender: FDA-Public Use
  Company Number: None

PATIENT
  Age: 77 Year
  Sex: Female

DRUGS (1)
  1. BOSENTAN 125 MG TABLETS 60/BO (TEVA) [Suspect]
     Active Substance: BOSENTAN
     Indication: PULMONARY ARTERIAL HYPERTENSION
     Route: 048
     Dates: start: 20190606

REACTIONS (4)
  - Haemoglobin decreased [None]
  - Lower gastrointestinal haemorrhage [None]
  - Anticoagulation drug level above therapeutic [None]
  - Colitis [None]

NARRATIVE: CASE EVENT DATE: 20210802
